FAERS Safety Report 8001182-5 (Version None)
Quarter: 2011Q4

REPORT INFORMATION
  Report Type: 
  Country: None (occurrence: None)
  Receive Date: 20111220
  Receipt Date: 20111214
  Transmission Date: 20120403
  Serious: Yes (Hospitalization)
  Sender: FDA-Public Use
  Company Number: 2011SP025638

PATIENT
  Age: 42 Year
  Sex: Female
  Weight: 101.1521 kg

DRUGS (4)
  1. PROZAC [Concomitant]
  2. NUVARING [Suspect]
     Indication: CONTRACEPTION
     Dates: start: 20070619, end: 20080611
  3. WELLBUTRIN [Concomitant]
  4. AMBIEN [Concomitant]

REACTIONS (13)
  - FIBRIN D DIMER INCREASED [None]
  - ARTHRALGIA [None]
  - MUSCLE RUPTURE [None]
  - ANXIETY [None]
  - MUSCLE SPASMS [None]
  - INSOMNIA [None]
  - FEELING ABNORMAL [None]
  - SLEEP DISORDER [None]
  - PALPITATIONS [None]
  - PULMONARY EMBOLISM [None]
  - SINUS TACHYCARDIA [None]
  - DILATATION VENTRICULAR [None]
  - RIGHT ATRIAL DILATATION [None]
